FAERS Safety Report 7884377-0 (Version None)
Quarter: 2011Q4

REPORT INFORMATION
  Report Type: 
  Country: None (occurrence: None)
  Receive Date: 20111102
  Receipt Date: 20111101
  Transmission Date: 20120403
  Serious: Yes (Other)
  Sender: FDA-Public Use
  Company Number: US-ROCHE-783630

PATIENT
  Sex: Male
  Weight: 61.744 kg

DRUGS (2)
  1. ACCUTANE [Suspect]
     Indication: ACNE
     Route: 048
     Dates: start: 20000801, end: 20010301
  2. MINOCIN [Concomitant]

REACTIONS (5)
  - CROHN'S DISEASE [None]
  - IRRITABLE BOWEL SYNDROME [None]
  - COLONIC POLYP [None]
  - STRESS [None]
  - INFLAMMATORY BOWEL DISEASE [None]
